FAERS Safety Report 7281598-5 (Version None)
Quarter: 2011Q1

REPORT INFORMATION
  Report Type: 
  Country: None (occurrence: None)
  Receive Date: 20110208
  Receipt Date: 20110203
  Transmission Date: 20110831
  Serious: Yes (Hospitalization, Other)
  Sender: FDA-Public Use
  Company Number: PHHY2010CA60889

PATIENT
  Sex: Male

DRUGS (6)
  1. SANDOSTATIN LAR [Suspect]
     Dosage: 20 MG, UNK
     Route: 030
     Dates: start: 20091021
  2. SANDOSTATIN LAR [Suspect]
     Indication: INSULINOMA
     Dosage: 20 MG, QMO
     Route: 030
     Dates: start: 20070201
  3. SANDOSTATIN LAR [Suspect]
     Dosage: 20 MG, TIW
     Route: 030
     Dates: start: 20070201, end: 20110116
  4. LACTULOSE [Concomitant]
  5. DILAUDID [Concomitant]
  6. LYRICA [Concomitant]

REACTIONS (5)
  - ASCITES [None]
  - OEDEMA [None]
  - PALLIATIVE CARE [None]
  - PAIN [None]
  - TERMINAL STATE [None]
